FAERS Safety Report 10140790 (Version 2)
Quarter: 2015Q1

REPORT INFORMATION
  Report Type: Other
  Country: US (occurrence: US)
  Receive Date: 20140429
  Receipt Date: 20150220
  Transmission Date: 20150720
  Serious: Yes (Hospitalization, Other)
  Sender: FDA-Public Use
  Company Number: US-GSKPPD-2014GSK038527

PATIENT
  Age: 55 Year

DRUGS (6)
  1. AVANDIA [Suspect]
     Active Substance: ROSIGLITAZONE MALEATE
     Indication: DIABETES MELLITUS
     Dosage: DATES OF AVANDIA USE COULD NOT BE CONFIRMED IN RECORDS REVIEWED.
     Route: 048
  2. COUMADIN [Concomitant]
     Active Substance: WARFARIN SODIUM
  3. ASPIRIN. [Concomitant]
     Active Substance: ASPIRIN
  4. PLAVIX [Concomitant]
     Active Substance: CLOPIDOGREL BISULFATE
  5. DIGOXIN. [Concomitant]
     Active Substance: DIGOXIN
  6. METOPROLOL [Concomitant]
     Active Substance: METOPROLOL

REACTIONS (3)
  - Coronary artery bypass [Recovered/Resolved]
  - Cerebral infarction [Recovered/Resolved]
  - Acute coronary syndrome [Recovered/Resolved]

NARRATIVE: CASE EVENT DATE: 20100929
